FAERS Safety Report 4563732-0 (Version None)
Quarter: 2005Q1

REPORT INFORMATION
  Report Type: 
  Country: None (occurrence: None)
  Receive Date: 20050128
  Receipt Date: 20050120
  Transmission Date: 20050727
  Serious: Yes (Other)
  Sender: FDA-Public Use
  Company Number: PHEH2005US01097

PATIENT
  Age: 32 Year
  Sex: Female

DRUGS (2)
  1. TRILEPTAL [Suspect]
     Indication: CONVULSION
     Dosage: 900 MG, BID
  2. LAMICTAL [Suspect]

REACTIONS (6)
  - COORDINATION ABNORMAL [None]
  - DIPLOPIA [None]
  - DRUG INTERACTION [None]
  - ENCEPHALOPATHY [None]
  - PARTIAL SEIZURES [None]
  - SOMNOLENCE [None]
